FAERS Safety Report 12186887 (Version 1)
Quarter: 2016Q1

REPORT INFORMATION
  Report Type: Spontaneous
  Country: CN (occurrence: CN)
  Receive Date: 20160317
  Receipt Date: 20160317
  Transmission Date: 20160526
  Serious: Yes (Other)
  Sender: FDA-Public Use
  Company Number: CN-CIPLA LTD.-2016CN02532

PATIENT

DRUGS (4)
  1. TETRAHYDROFURAN [Suspect]
     Active Substance: TETRAHYDROFURAN
     Indication: BREAST CANCER
     Dosage: 30 MG/M2 ON DAY 2 AND 3
     Route: 041
  2. EPIRUBICIN [Suspect]
     Active Substance: EPIRUBICIN
     Indication: BREAST CANCER
     Dosage: 60 MG/M2 ON DAY 2 AND 3
     Route: 041
  3. CYCLOPHOSPHAMIDE. [Suspect]
     Active Substance: CYCLOPHOSPHAMIDE
     Indication: BREAST CANCER
     Dosage: 800 MG/M2 ON DAY 1 AND 8
     Route: 042
  4. FLUOROURACIL. [Suspect]
     Active Substance: FLUOROURACIL
     Indication: BREAST CANCER
     Dosage: 500 MG/M2 DURING DAY 4 AND 6
     Route: 041

REACTIONS (1)
  - Disease progression [Unknown]
